FAERS Safety Report 16078311 (Version 1)
Quarter: 2019Q2

REPORT INFORMATION
  Report Type: Spontaneous
  Country: US (occurrence: US)
  Receive Date: 20190315
  Receipt Date: 20190315
  Transmission Date: 20190711
  Serious: No
  Sender: FDA-Public Use
  Company Number: None

PATIENT
  Age: 1 Year
  Sex: Male
  Weight: 12.6 kg

DRUGS (1)
  1. OSELTAMIVIR PHOSPHATE FOR ORAL SUSPENSION [Suspect]
     Active Substance: OSELTAMIVIR PHOSPHATE
     Indication: INFLUENZA
     Dosage: ?          QUANTITY:5 ML;?
     Route: 048
     Dates: start: 20190313, end: 20190315

REACTIONS (3)
  - Blepharospasm [None]
  - Eye movement disorder [None]
  - Abnormal behaviour [None]

NARRATIVE: CASE EVENT DATE: 20190314
